FAERS Safety Report 7632553-4 (Version None)
Quarter: 2011Q3

REPORT INFORMATION
  Report Type: 
  Country: None (occurrence: None)
  Receive Date: 20110725
  Receipt Date: 20101109
  Transmission Date: 20111222
  Serious: No
  Sender: FDA-Public Use
  Company Number: US-BRISTOL-MYERS SQUIBB COMPANY-15325814

PATIENT
  Age: 83 Year
  Sex: Female

DRUGS (10)
  1. ZETIA [Concomitant]
  2. XANAX [Concomitant]
  3. PEPCID [Concomitant]
  4. VITAMIN TAB [Concomitant]
  5. CALAN [Concomitant]
  6. ISOSORBIDE MONONITRATE [Concomitant]
  7. FOLIC ACID [Concomitant]
  8. HYDROCHLOROTHIAZIDE [Concomitant]
  9. VITAMIN D [Concomitant]
     Dosage: OSCO PLUS VITAMIN D
  10. COUMADIN [Suspect]
     Dosage: ALTERNATING WITH 5MG/DAY

REACTIONS (5)
  - CONSTIPATION [None]
  - PROTHROMBIN TIME SHORTENED [None]
  - FEELING HOT [None]
  - WEIGHT DECREASED [None]
  - ABDOMINAL PAIN UPPER [None]
